FAERS Safety Report 6094941-X (Version None)
Quarter: 2009Q1

REPORT INFORMATION
  Report Type: 
  Country: None (occurrence: None)
  Receive Date: 20090227
  Receipt Date: 20090218
  Transmission Date: 20090719
  Serious: Yes (Disabling, Other)
  Sender: FDA-Public Use
  Company Number: CA-JNJFOC-20081201619

PATIENT
  Sex: Male
  Weight: 65.5 kg

DRUGS (9)
  1. REMICADE [Suspect]
     Indication: COLITIS ULCERATIVE
     Route: 042
  2. SALOFALK SUPPOSITORIES [Concomitant]
  3. RANITIDINE [Concomitant]
  4. DILTIAZEM [Concomitant]
  5. LORAZEPAM [Concomitant]
  6. ENTOCORT EC [Concomitant]
  7. ELTROXIN [Concomitant]
  8. KETODERM [Concomitant]
  9. HYDROCHLOROTHIAZIDE [Concomitant]

REACTIONS (4)
  - HYPOACUSIS [None]
  - ONYCHOMADESIS [None]
  - PARAESTHESIA [None]
  - RASH [None]
